FAERS Safety Report 4808716-X (Version None)
Quarter: 2005Q4

REPORT INFORMATION
  Report Type: 
  Country: None (occurrence: None)
  Receive Date: 20051021
  Receipt Date: 20041103
  Transmission Date: 20060501
  Serious: No
  Sender: FDA-Public Use
  Company Number: DE_041114627

PATIENT
  Age: 53 Year
  Sex: Male

DRUGS (3)
  1. ZYPREXA [Suspect]
     Indication: SCHIZOPHRENIA
     Dosage: 20 MG DAY
     Route: 048
     Dates: start: 20040924
  2. ATOSIL             (ISOPROMETHAZINE HYDROCHLORIDE) [Concomitant]
  3. LORAZEPAM [Concomitant]

REACTIONS (5)
  - BLOOD IMMUNOGLOBULIN E INCREASED [None]
  - EOSINOPHILIA [None]
  - HELMINTHIC INFECTION [None]
  - NEUTROPHIL COUNT DECREASED [None]
  - REFUSAL OF TREATMENT BY PATIENT [None]
